FAERS Safety Report 5846555-1 (Version None)
Quarter: 2008Q3

REPORT INFORMATION
  Report Type: 
  Country: None (occurrence: None)
  Receive Date: 20080815
  Receipt Date: 20080801
  Transmission Date: 20090109
  Serious: Yes (Hospitalization)
  Sender: FDA-Public Use
  Company Number: ES-ELI_LILLY_AND_COMPANY-ES200808000703

PATIENT
  Age: 68 Year
  Sex: Female

DRUGS (11)
  1. FORTEO [Suspect]
     Indication: OSTEOPOROSIS
     Dosage: 20 UG, UNKNOWN
     Route: 058
     Dates: start: 20080506
  2. ENOXAPARIN SODIUM [Concomitant]
     Dosage: UNK, UNKNOWN
     Route: 065
  3. LOFTON [Concomitant]
     Dosage: UNK, UNKNOWN
     Route: 065
  4. TORSEMIDE [Concomitant]
     Indication: DIURETIC THERAPY
     Dosage: 10 MG, UNKNOWN
     Route: 065
  5. MICARDIS [Concomitant]
     Indication: HYPERTENSION
     Dosage: 80 MG, UNKNOWN
     Route: 065
  6. NOLOTIL [Concomitant]
     Indication: PAIN
     Dosage: UNK, UNKNOWN
     Route: 065
  7. ARAVA [Concomitant]
     Dosage: UNK, UNKNOWN
     Route: 065
  8. DACORTIN [Concomitant]
     Dosage: 10 MG, UNKNOWN
     Route: 065
  9. OMEPRAZOLE [Concomitant]
     Dosage: 20 MG, UNKNOWN
     Route: 065
  10. TRAMADOL HCL [Concomitant]
     Indication: PAIN
     Dosage: UNK, UNKNOWN
     Route: 065
  11. PARACETAMOL [Concomitant]
     Indication: PAIN
     Dosage: UNK, UNKNOWN
     Route: 065

REACTIONS (2)
  - ARRHYTHMIA [None]
  - HAEMORRHOIDAL HAEMORRHAGE [None]
